FAERS Safety Report 4903530-9 (Version None)
Quarter: 2006Q1

REPORT INFORMATION
  Report Type: 
  Country: None (occurrence: None)
  Receive Date: 20060208
  Receipt Date: 20060105
  Transmission Date: 20060701
  Serious: Yes (Other)
  Sender: FDA-Public Use
  Company Number: PHFR2006GB00480

PATIENT
  Age: 30 Year
  Sex: Female
  Weight: 100 kg

DRUGS (2)
  1. CLOZARIL [Suspect]
     Dosage: 300 MG IN ERROR
     Route: 048
     Dates: start: 20060108, end: 20060108
  2. ZUCLOPENTHIXOL DECANOATE [Concomitant]
     Indication: PSYCHOTIC DISORDER
     Dosage: 600 MG/DAY
     Route: 030

REACTIONS (1)
  - ACCIDENTAL EXPOSURE [None]
